FAERS Safety Report 4301598-4 (Version None)
Quarter: 2004Q1

REPORT INFORMATION
  Report Type: 
  Country: None (occurrence: None)
  Receive Date: 20040219
  Receipt Date: 20040209
  Transmission Date: 20041129
  Serious: Yes (Other)
  Sender: FDA-Public Use
  Company Number: AU-JNJFOC-20040201902

PATIENT

DRUGS (1)
  1. RISPERDAL CONSTA [Suspect]
     Dosage: PATIENT RECEIVED RISPERIDONE ON 02-FEB-2004.

REACTIONS (1)
  - MUTISM [None]
